FAERS Safety Report 20985841 (Version 1)
Quarter: 2022Q2

REPORT INFORMATION
  Report Type: Spontaneous
  Country: US (occurrence: None)
  Receive Date: 20220617
  Receipt Date: 20220617
  Transmission Date: 20220721
  Serious: Yes (Hospitalization)
  Sender: FDA-Public Use
  Company Number: None

PATIENT
  Age: 20 Year
  Sex: Male
  Weight: 88 kg

DRUGS (1)
  1. TISAGENLECLEUCEL [Suspect]
     Active Substance: TISAGENLECLEUCEL
     Indication: Acute lymphocytic leukaemia
     Dates: start: 20220519, end: 20220519

REACTIONS (4)
  - Hypoxia [None]
  - Hypotension [None]
  - Cytokine release syndrome [None]
  - Malignant neoplasm progression [None]

NARRATIVE: CASE EVENT DATE: 20220522
